FAERS Safety Report 7812760-8 (Version None)
Quarter: 2011Q4

REPORT INFORMATION
  Report Type: 
  Country: None (occurrence: None)
  Receive Date: 20111011
  Receipt Date: 20110926
  Transmission Date: 20120403
  Serious: Yes (Other)
  Sender: FDA-Public Use
  Company Number: 2011AT000138

PATIENT
  Sex: Male

DRUGS (1)
  1. EDEX [Suspect]
     Indication: ERECTILE DYSFUNCTION
     Dosage: 10 UG;BIW;ICAN
     Dates: start: 20110301

REACTIONS (7)
  - FIBROSIS [None]
  - INTENTIONAL DRUG MISUSE [None]
  - PENILE CURVATURE [None]
  - BURNING SENSATION [None]
  - INJECTION SITE PAIN [None]
  - PENILE NECROSIS [None]
  - DRUG INEFFECTIVE [None]
